FAERS Safety Report 4304576-4 (Version None)
Quarter: 2004Q1

REPORT INFORMATION
  Report Type: 
  Country: None (occurrence: None)
  Receive Date: 20040224
  Receipt Date: 20040219
  Transmission Date: 20041129
  Serious: Yes (Hospitalization)
  Sender: FDA-Public Use
  Company Number: GB-JNJFOC-20040100359

PATIENT
  Age: 60 Year
  Sex: Female

DRUGS (9)
  1. REMICADE [Suspect]
     Indication: RHEUMATOID ARTHRITIS
     Dosage: 267 MG, INTRAVENOUS
     Route: 042
     Dates: start: 20030620, end: 20030901
  2. METHOTREXATE [Concomitant]
  3. FOLIC ACID [Concomitant]
  4. LANSOPRAZOLE [Concomitant]
  5. FERROUS SULPHATE (FERROUS SULFATE) [Concomitant]
  6. LACTULOSE [Concomitant]
  7. TRAMADOL HCL [Concomitant]
  8. PARACETAMOL (PARACETAMOL) [Concomitant]
  9. TEMAZEPAM [Concomitant]

REACTIONS (4)
  - BASAL CELL CARCINOMA [None]
  - CELLULITIS [None]
  - NASAL NEOPLASM [None]
  - POST PROCEDURAL COMPLICATION [None]
